FAERS Safety Report 7811656-5 (Version None)
Quarter: 2011Q4

REPORT INFORMATION
  Report Type: 
  Country: None (occurrence: None)
  Receive Date: 20111013
  Receipt Date: 20110722
  Transmission Date: 20120403
  Serious: No
  Sender: FDA-Public Use
  Company Number: US-NOVEN-11US002840

PATIENT
  Sex: Female

DRUGS (5)
  1. PERCOCET [Concomitant]
     Indication: PAIN
     Dosage: UNK
     Route: 048
  2. FENTANYL [Suspect]
     Indication: PAIN
     Dosage: 50 UG/HR Q 72HRS
     Route: 062
  3. FENTANYL [Suspect]
     Indication: INTERVERTEBRAL DISC DEGENERATION
  4. FENTANYL [Suspect]
     Indication: ROAD TRAFFIC ACCIDENT
  5. FENTANYL [Suspect]
     Indication: SPINAL FUSION SURGERY

REACTIONS (2)
  - INADEQUATE ANALGESIA [None]
  - PRODUCT QUALITY ISSUE [None]
